FAERS Safety Report 9606007 (Version 1)
Quarter: 2013Q4

REPORT INFORMATION
  Report Type: Spontaneous
  Country: PT (occurrence: PT)
  Receive Date: 20131008
  Receipt Date: 20131008
  Transmission Date: 20140711
  Serious: Yes (Hospitalization)
  Sender: FDA-Public Use
  Company Number: PHHY2013PT109360

PATIENT
  Age: 48 Year
  Sex: Male

DRUGS (2)
  1. PREDNISOLONE [Suspect]
     Dosage: 40 MG
     Route: 048
  2. SULFASALAZINE [Concomitant]

REACTIONS (7)
  - Septic shock [Unknown]
  - Zygomycosis [Recovered/Resolved]
  - Gastrointestinal erosion [Recovered/Resolved]
  - Large intestinal ulcer [Recovered/Resolved]
  - Abdominal pain [Recovered/Resolved]
  - Pyrexia [Recovered/Resolved]
  - Vomiting [Recovered/Resolved]
